FAERS Safety Report 17611929 (Version 1)
Quarter: 2020Q2

REPORT INFORMATION
  Report Type: Spontaneous
  Country: GB (occurrence: GB)
  Receive Date: 20200401
  Receipt Date: 20200401
  Transmission Date: 20200713
  Serious: Yes (Other)
  Sender: FDA-Public Use
  Company Number: GB-ALLERGAN-2013608US

PATIENT
  Sex: Female

DRUGS (2)
  1. TRIPTORELIN PAMOATE - BP [Suspect]
     Active Substance: TRIPTORELIN PAMOATE
     Indication: TRANSGENDER HORMONAL THERAPY
     Dosage: UNK
     Route: 051
     Dates: start: 20180419
  2. ESTRADIOL VALERATE. [Concomitant]
     Active Substance: ESTRADIOL VALERATE

REACTIONS (4)
  - Food interaction [Unknown]
  - Anxiety [Not Recovered/Not Resolved]
  - Off label use [Unknown]
  - Panic attack [Not Recovered/Not Resolved]

NARRATIVE: CASE EVENT DATE: 20180419
